FAERS Safety Report 15573486 (Version 1)
Quarter: 2018Q4

REPORT INFORMATION
  Report Type: Report from Study
  Country: GB (occurrence: GB)
  Receive Date: 20181101
  Receipt Date: 20181101
  Transmission Date: 20190205
  Serious: Yes (Other)
  Sender: FDA-Public Use
  Company Number: GB-ROCHE-1624295

PATIENT
  Age: 67 Year
  Sex: Male

DRUGS (2)
  1. ESBRIET [Suspect]
     Active Substance: PIRFENIDONE
     Indication: IDIOPATHIC PULMONARY FIBROSIS
     Dosage: 801 MG TID
     Route: 048
  2. ESBRIET [Suspect]
     Active Substance: PIRFENIDONE
     Indication: IDIOPATHIC PULMONARY FIBROSIS
     Dosage: 9 CAPSULES
     Route: 048
     Dates: start: 20141002

REACTIONS (13)
  - Fatigue [Not Recovered/Not Resolved]
  - Cough [Recovering/Resolving]
  - Somnolence [Unknown]
  - Vitamin D decreased [Recovered/Resolved]
  - Arthritis [Unknown]
  - Pain [Unknown]
  - Polymyalgia rheumatica [Unknown]
  - Nasopharyngitis [Unknown]
  - Campylobacter infection [Unknown]
  - Forced vital capacity decreased [Unknown]
  - Insomnia [Unknown]
  - Arthralgia [Unknown]
  - Musculoskeletal stiffness [Unknown]

NARRATIVE: CASE EVENT DATE: 201608
